FAERS Safety Report 9181682 (Version 1)
Quarter: 2013Q1

REPORT INFORMATION
  Report Type: Spontaneous
  Country: US (occurrence: US)
  Receive Date: 20130322
  Receipt Date: 20130322
  Transmission Date: 20140127
  Serious: Yes (Other)
  Sender: FDA-Public Use
  Company Number: US-BAYER-2013-033246

PATIENT
  Sex: 0

DRUGS (1)
  1. ALEVE [Suspect]
     Indication: SUICIDAL IDEATION
     Dosage: 10 DF, UNK

REACTIONS (1)
  - Intentional overdose [None]
